FAERS Safety Report 4326015-X (Version None)
Quarter: 2004Q1

REPORT INFORMATION
  Report Type: 
  Country: None (occurrence: None)
  Receive Date: 20040324
  Receipt Date: 20040310
  Transmission Date: 20041129
  Serious: Yes (Other)
  Sender: FDA-Public Use
  Company Number: FR_040303723

PATIENT
  Sex: Male

DRUGS (2)
  1. PEMETREXED [Suspect]
     Indication: PLEURAL MESOTHELIOMA MALIGNANT
     Dosage: 500 MG/M2/1 OTHER
     Route: 050
     Dates: start: 20031001
  2. CISPLATIN [Concomitant]

REACTIONS (1)
  - CREATININE RENAL CLEARANCE DECREASED [None]
